FAERS Safety Report 5824243-5 (Version None)
Quarter: 2008Q3

REPORT INFORMATION
  Report Type: 
  Country: None (occurrence: None)
  Receive Date: 20080718
  Receipt Date: 20080407
  Transmission Date: 20090109
  Serious: Yes (Other)
  Sender: FDA-Public Use
  Company Number: A-US2007-16435

PATIENT
  Age: 79 Year
  Sex: Female

DRUGS (3)
  1. TRACLEER [Suspect]
     Indication: PULMONARY HYPERTENSION
     Dosage: 62.5 MG, BID, ORAL
     Route: 048
     Dates: start: 20070501, end: 20070701
  2. COUMADIN [Concomitant]
  3. OXYGEN (OXYGEN) [Concomitant]

REACTIONS (4)
  - EMOTIONAL DISORDER [None]
  - INTERNATIONAL NORMALISED RATIO ABNORMAL [None]
  - IRRITABILITY [None]
  - NO THERAPEUTIC RESPONSE [None]
